FAERS Safety Report 14831666 (Version 1)
Quarter: 2018Q2

REPORT INFORMATION
  Report Type: Spontaneous
  Country: US (occurrence: US)
  Receive Date: 20180501
  Receipt Date: 20180501
  Transmission Date: 20180711
  Serious: No
  Sender: FDA-Public Use
  Company Number: US-UNICHEM PHARMACEUTICALS (USA) INC-UCM201801-000022

PATIENT
  Sex: Female

DRUGS (4)
  1. METRONIDAZOLE 500 MG TABLETS [Suspect]
     Active Substance: METRONIDAZOLE
     Indication: BACTERIAL VAGINOSIS
  2. FLAGYL [Concomitant]
     Active Substance: METRONIDAZOLE\METRONIDAZOLE HYDROCHLORIDE
     Indication: BURNING SENSATION
  3. PREMARIN [Concomitant]
     Active Substance: ESTROGENS, CONJUGATED
     Indication: ATROPHIC VULVOVAGINITIS
  4. LO LOESTRIN FE 1-10 [Concomitant]
     Indication: ORAL CONTRACEPTION

REACTIONS (2)
  - Dysuria [Recovering/Resolving]
  - Feeling abnormal [Recovering/Resolving]
